FAERS Safety Report 7031936-3 (Version None)
Quarter: 2010Q4

REPORT INFORMATION
  Report Type: 
  Country: None (occurrence: None)
  Receive Date: 20101007
  Receipt Date: 20100930
  Transmission Date: 20110411
  Serious: Yes (Life-Threatening, Hospitalization, Other)
  Sender: FDA-Public Use
  Company Number: US-ELI_LILLY_AND_COMPANY-US201010000378

PATIENT
  Sex: Male

DRUGS (4)
  1. HUMULIN R [Suspect]
     Indication: DIABETES MELLITUS
     Dosage: 60 U, DAILY (1/D)
     Route: 058
     Dates: start: 20080313
  2. HUMULIN R [Suspect]
     Dosage: 20 U, EACH MORNING
     Route: 058
     Dates: end: 20080313
  3. HUMULIN R [Suspect]
     Dosage: 10 U, OTHER
     Route: 058
     Dates: end: 20080313
  4. HUMALOG [Suspect]
     Indication: DIABETES MELLITUS
     Route: 058
     Dates: end: 20080313

REACTIONS (15)
  - ACCIDENTAL OVERDOSE [None]
  - CARDIAC ARREST [None]
  - CHOLELITHIASIS [None]
  - CYST [None]
  - DRUG INEFFECTIVE [None]
  - HAEMORRHAGE [None]
  - HYPERGLYCAEMIA [None]
  - HYPERHIDROSIS [None]
  - HYPOGLYCAEMIC SEIZURE [None]
  - HYPOGLYCAEMIC UNCONSCIOUSNESS [None]
  - NAUSEA [None]
  - OFF LABEL USE [None]
  - PANCREATIC DISORDER [None]
  - PANCREATITIS [None]
  - VOMITING [None]
